FAERS Safety Report 9886029 (Version 1)
Quarter: 2014Q1

REPORT INFORMATION
  Report Type: Spontaneous
  Country: US (occurrence: None)
  Receive Date: 20140207
  Receipt Date: 20140207
  Transmission Date: 20141002
  Serious: Yes (Life-Threatening, Hospitalization)
  Sender: FDA-Public Use
  Company Number: None

PATIENT
  Age: 78 Year
  Sex: Male

DRUGS (1)
  1. ENOXAPARIN [Suspect]
     Dosage: INJECT 120MG UNDER THE SKIN EVERY 12 HOURS
     Route: 058
     Dates: start: 20131024, end: 20131225

REACTIONS (3)
  - Dyspnoea [None]
  - Abasia [None]
  - Haemorrhage [None]
